FAERS Safety Report 8697250 (Version 3)
Quarter: 2013Q2

REPORT INFORMATION
  Report Type: Spontaneous
  Country: US (occurrence: US)
  Receive Date: 20120801
  Receipt Date: 20130415
  Transmission Date: 20140414
  Serious: Yes (Other)
  Sender: FDA-Public Use
  Company Number: US-ASTRAZENECA-2006UW00943

PATIENT
  Age: 83 Year
  Sex: Female

DRUGS (2)
  1. ARIMIDEX [Suspect]
     Route: 048
  2. TOPROL XL [Suspect]
     Route: 048

REACTIONS (13)
  - Neoplasm malignant [Unknown]
  - Hypertension [Unknown]
  - Malaise [Unknown]
  - Visual impairment [Unknown]
  - Local swelling [Unknown]
  - Insomnia [Unknown]
  - Pain [Unknown]
  - Hearing impaired [Unknown]
  - Osteoporosis [Unknown]
  - Joint swelling [Unknown]
  - Nausea [Unknown]
  - Asthenia [Unknown]
  - Drug dose omission [Unknown]
